FAERS Safety Report 22638165 (Version 1)
Quarter: 2023Q2

REPORT INFORMATION
  Report Type: Spontaneous
  Country: US (occurrence: None)
  Receive Date: 20230623
  Receipt Date: 20230623
  Transmission Date: 20230722
  Serious: No
  Sender: FDA-Public Use
  Company Number: None

PATIENT
  Age: 30 Year
  Sex: Male
  Weight: 55.8 kg

DRUGS (4)
  1. TRIAMCINOLONE ACETONIDE [Suspect]
     Active Substance: TRIAMCINOLONE ACETONIDE
     Indication: Lichen planopilaris
     Dates: start: 20220607, end: 20220607
  2. HYDROXYCHLOROQUINE [Concomitant]
     Active Substance: HYDROXYCHLOROQUINE
  3. RITALIN LA [Concomitant]
     Active Substance: METHYLPHENIDATE HYDROCHLORIDE
  4. Lifeable Men^s Multivitamin Gummies with Ginseng and Lycopene [Concomitant]

REACTIONS (5)
  - Loss of libido [None]
  - Muscular weakness [None]
  - Cushingoid [None]
  - Anger [None]
  - Irritability [None]

NARRATIVE: CASE EVENT DATE: 20220607
